FAERS Safety Report 5710083-4 (Version None)
Quarter: 2008Q2

REPORT INFORMATION
  Report Type: 
  Country: None (occurrence: None)
  Receive Date: 20080418
  Receipt Date: 20071001
  Transmission Date: 20081010
  Serious: No
  Sender: FDA-Public Use
  Company Number: US-ASTRAZENECA-2007UW22852

PATIENT
  Age: 59 Year
  Sex: Male
  Weight: 90.7 kg

DRUGS (8)
  1. TOPROL-XL [Suspect]
     Indication: MYOCARDIAL INFARCTION
     Route: 048
     Dates: start: 20060301
  2. WELLBUTRIN [Concomitant]
  3. ZETIA [Concomitant]
  4. METFORMIN HCL [Concomitant]
  5. PLAVIX [Concomitant]
  6. ASPIRIN [Concomitant]
  7. EFFEXOR [Concomitant]
  8. TOPROL-XL [Concomitant]

REACTIONS (1)
  - BLOOD GLUCOSE INCREASED [None]
